FAERS Safety Report 21932820 (Version 1)
Quarter: 2023Q1

REPORT INFORMATION
  Report Type: Other
  Country: JP (occurrence: JP)
  Receive Date: 20230131
  Receipt Date: 20230131
  Transmission Date: 20230418
  Serious: Yes (Hospitalization)
  Sender: FDA-Public Use
  Company Number: JP-UPSHER-SMITH LABORATORIES, LLC-2023USL00058

PATIENT
  Age: 70 Year
  Sex: Male

DRUGS (10)
  1. FLUVOXAMINE MALEATE [Suspect]
     Active Substance: FLUVOXAMINE MALEATE
     Indication: Obsessive-compulsive disorder
     Dosage: 25 MG, 3X/DAY
     Dates: start: 20221018
  2. ZYPREXA [Concomitant]
     Active Substance: OLANZAPINE
     Dosage: 2.5 MG, 1X/DAY
     Dates: start: 20190709
  3. ZYPREXA [Concomitant]
     Active Substance: OLANZAPINE
     Dosage: UNK
  4. BROMAZEPAM [Concomitant]
     Active Substance: BROMAZEPAM
     Dosage: UNK
     Dates: start: 20190909, end: 201910
  5. BROMAZEPAM [Concomitant]
     Active Substance: BROMAZEPAM
     Dosage: 2 MG, 3X/DAY
     Dates: start: 20210419
  6. AMLODIPINE [Concomitant]
     Active Substance: AMLODIPINE BESYLATE
  7. ETIZOLAM [Concomitant]
     Active Substance: ETIZOLAM
     Dosage: 1 MG
  8. AROTINOLOL HYDROCHLORIDE [Concomitant]
     Active Substance: AROTINOLOL HYDROCHLORIDE
     Dosage: 20 MG
  9. CILOSTAZOL [Concomitant]
     Active Substance: CILOSTAZOL
     Dosage: 20 MG
  10. OLMESARTAN MEDOXOMIL ODT [Concomitant]
     Dosage: 20 MG

REACTIONS (4)
  - Neuroleptic malignant syndrome [Recovering/Resolving]
  - Fall [Recovered/Resolved]
  - Contusion [Unknown]
  - COVID-19 [Unknown]

NARRATIVE: CASE EVENT DATE: 20220101
